FAERS Safety Report 7969768-1 (Version None)
Quarter: 2011Q4

REPORT INFORMATION
  Report Type: 
  Country: None (occurrence: None)
  Receive Date: 20111122
  Receipt Date: 20110812
  Transmission Date: 20120403
  Serious: No
  Sender: FDA-Public Use
  Company Number: PHEH2011US01583

PATIENT
  Sex: Male

DRUGS (1)
  1. GILENYA [Suspect]
     Indication: MULTIPLE SCLEROSIS
     Dosage: 0.5 MG, QD, ORAL
     Route: 048
     Dates: start: 20101223

REACTIONS (6)
  - DRY THROAT [None]
  - NASOPHARYNGITIS [None]
  - RHINORRHOEA [None]
  - FATIGUE [None]
  - MALAISE [None]
  - HYPERSENSITIVITY [None]
